FAERS Safety Report 7504600-1 (Version None)
Quarter: 2011Q2

REPORT INFORMATION
  Report Type: 
  Country: None (occurrence: None)
  Receive Date: 20110525
  Receipt Date: 20100616
  Transmission Date: 20111010
  Serious: No
  Sender: FDA-Public Use
  Company Number: US-KINGPHARMUSA00001-K201000756

PATIENT
  Age: 37 Year
  Sex: Female
  Weight: 63.039 kg

DRUGS (2)
  1. CONTRACEPTIVES NOS [Concomitant]
     Indication: CONTRACEPTION
     Dosage: UNK
  2. TAPAZOLE [Suspect]
     Indication: HYPERTHYROIDISM
     Dosage: 10 MG, QD
     Route: 048
     Dates: end: 20100601

REACTIONS (3)
  - FACIAL PAIN [None]
  - PAIN IN EXTREMITY [None]
  - NEURALGIA [None]
